FAERS Safety Report 13139430 (Version 2)
Quarter: 2017Q1

REPORT INFORMATION
  Report Type: Spontaneous
  Country: FR (occurrence: FR)
  Receive Date: 20170123
  Receipt Date: 20170126
  Transmission Date: 20170428
  Serious: Yes (Hospitalization)
  Sender: FDA-Public Use
  Company Number: FR-PFIZER INC-2017021343

PATIENT
  Age: 59 Year
  Sex: Male
  Weight: 62 kg

DRUGS (6)
  1. CISPLATIN ACCORD [Suspect]
     Active Substance: CISPLATIN
     Indication: TONSILLAR NEOPLASM
     Dosage: UNK
     Route: 042
     Dates: start: 201502, end: 201504
  2. NEULASTA [Suspect]
     Active Substance: PEGFILGRASTIM
     Indication: TONSILLAR NEOPLASM
     Dosage: UNK
  3. DOCETAXEL. [Suspect]
     Active Substance: DOCETAXEL
     Indication: TONSILLAR NEOPLASM
     Dosage: UNK
     Route: 042
     Dates: start: 201609, end: 201612
  4. CARBOPLATINE HOSPIRA [Suspect]
     Active Substance: CARBOPLATIN
     Indication: TONSILLAR NEOPLASM
     Dosage: UNK
     Route: 042
     Dates: start: 201609, end: 201612
  5. CAPECITABINE MYLAN [Suspect]
     Active Substance: CAPECITABINE
     Indication: TONSILLAR NEOPLASM
     Dosage: UNK
     Route: 042
     Dates: start: 201609, end: 201612
  6. ERBITUX [Concomitant]
     Active Substance: CETUXIMAB
     Indication: TONSILLAR NEOPLASM
     Dosage: UNK
     Dates: start: 20170104

REACTIONS (2)
  - Second primary malignancy [Not Recovered/Not Resolved]
  - Acute myeloid leukaemia [Not Recovered/Not Resolved]

NARRATIVE: CASE EVENT DATE: 201701
